FAERS Safety Report 7293294-9 (Version None)
Quarter: 2011Q1

REPORT INFORMATION
  Report Type: 
  Country: None (occurrence: None)
  Receive Date: 20110215
  Receipt Date: 20110201
  Transmission Date: 20110831
  Serious: Yes (Hospitalization)
  Sender: FDA-Public Use
  Company Number: CN-WATSON-2011-01835

PATIENT

DRUGS (2)
  1. CAPTOPRIL (WATSON LABORATORIES) [Suspect]
     Indication: CARDIAC FAILURE CONGESTIVE
  2. CAPTOPRIL (WATSON LABORATORIES) [Suspect]
     Indication: DOUBLE OUTLET RIGHT VENTRICLE
     Dosage: 0.1 MG/KG, PER 8 HOURS

REACTIONS (5)
  - RENAL FAILURE ACUTE [None]
  - HYPERKALAEMIA [None]
  - OLIGURIA [None]
  - BLOOD CREATININE INCREASED [None]
  - BLOOD UREA INCREASED [None]
